FAERS Safety Report 4336676-7 (Version None)
Quarter: 2004Q2

REPORT INFORMATION
  Report Type: 
  Country: None (occurrence: None)
  Receive Date: 20040412
  Receipt Date: 20040401
  Transmission Date: 20050107
  Serious: Yes (Death)
  Sender: FDA-Public Use
  Company Number: JP-GLAXOSMITHKLINE-B0328798A

PATIENT
  Age: 11 Year
  Sex: Male
  Weight: 35 kg

DRUGS (43)
  1. ALKERAN [Suspect]
     Indication: ALLOGENIC BONE MARROW TRANSPLANTATION THERAPY
     Dosage: 70MGK PER DAY
     Route: 042
     Dates: start: 20030831, end: 20030902
  2. BUSULPHAN [Suspect]
     Indication: ALLOGENIC BONE MARROW TRANSPLANTATION THERAPY
     Dosage: 1MGK FOUR TIMES PER DAY
     Route: 048
     Dates: start: 20030829, end: 20030830
  3. NEUTROGIN [Concomitant]
     Dates: start: 20030910, end: 20031014
  4. TACROLIMUS HYDRATE [Concomitant]
     Indication: IMMUNOSUPPRESSION
     Route: 065
     Dates: start: 20030906, end: 20031023
  5. METHOTREXATE [Concomitant]
     Indication: IMMUNOSUPPRESSION
     Route: 065
     Dates: start: 20030901, end: 20030901
  6. METHOTREXATE [Concomitant]
     Route: 065
     Dates: start: 20030908, end: 20030908
  7. METHOTREXATE [Concomitant]
     Route: 065
     Dates: start: 20030911, end: 20030911
  8. METHOTREXATE [Concomitant]
     Route: 065
     Dates: start: 20030916, end: 20030916
  9. FOSFOMYCIN [Concomitant]
     Route: 042
     Dates: start: 20030829, end: 20030901
  10. PROSTANDIN [Concomitant]
     Route: 042
     Dates: start: 20030829, end: 20031023
  11. KYTRIL [Concomitant]
     Route: 042
     Dates: start: 20030829, end: 20030904
  12. DIAMOX [Concomitant]
     Dates: start: 20030829, end: 20030904
  13. HEPARIN [Concomitant]
     Dates: start: 20030829, end: 20031023
  14. CARBENIN [Concomitant]
     Route: 042
     Dates: start: 20030901, end: 20030911
  15. CARBENIN [Concomitant]
     Route: 042
     Dates: start: 20031012, end: 20031019
  16. DIFLUCAN [Concomitant]
     Route: 042
     Dates: start: 20030901, end: 20030925
  17. DECADRON [Concomitant]
     Dates: start: 20030903, end: 20030904
  18. MEYLON [Concomitant]
     Route: 042
     Dates: start: 20030902, end: 20030904
  19. GASTER [Concomitant]
     Dates: start: 20030903, end: 20031023
  20. BIAPENEM [Concomitant]
     Route: 042
     Dates: start: 20030911, end: 20031011
  21. BIAPENEM [Concomitant]
     Route: 042
     Dates: start: 20031020, end: 20031021
  22. MINOMYCIN [Concomitant]
     Route: 042
     Dates: start: 20030912, end: 20031003
  23. MIRACLID [Concomitant]
     Route: 042
     Dates: start: 20030918, end: 20030919
  24. ULINASTATIN [Concomitant]
     Route: 042
     Dates: start: 20030920, end: 20031012
  25. INOVAN [Concomitant]
     Route: 042
     Dates: start: 20030925, end: 20031012
  26. MODACIN [Concomitant]
     Route: 042
     Dates: start: 20031003, end: 20031011
  27. HUMULIN R [Concomitant]
     Dates: start: 20031012, end: 20031023
  28. GANCICLOVIR [Concomitant]
     Route: 042
     Dates: start: 20031012, end: 20031015
  29. TARGOCID [Concomitant]
     Route: 042
     Dates: start: 20031003, end: 20031017
  30. KEITEN [Concomitant]
     Route: 042
     Dates: start: 20031022, end: 20031023
  31. BOSMIN [Concomitant]
     Dates: start: 20031023, end: 20031023
  32. SOLU-MEDROL [Concomitant]
     Route: 042
  33. LASIX [Concomitant]
     Route: 042
  34. SOLU-CORTEF [Concomitant]
  35. SOSEGON [Concomitant]
  36. ATARAX [Concomitant]
  37. ZOVIRAX [Concomitant]
     Route: 048
     Dates: start: 20030829, end: 20030908
  38. URSO [Concomitant]
     Route: 048
     Dates: start: 20030829, end: 20030922
  39. JUVELA [Concomitant]
     Route: 048
     Dates: start: 20030829, end: 20030908
  40. FUNGIZONE [Concomitant]
     Route: 048
     Dates: start: 20030826, end: 20030916
  41. BAKTAR [Concomitant]
     Route: 048
     Dates: start: 20030826, end: 20030902
  42. POLYMYXIN B SULFATE [Concomitant]
     Route: 048
     Dates: start: 20030826, end: 20030908
  43. ALLOPURINOL [Concomitant]
     Route: 048
     Dates: start: 20030826, end: 20030903

REACTIONS (7)
  - DIARRHOEA [None]
  - DYSPNOEA [None]
  - HYPOXIA [None]
  - INTERSTITIAL LUNG DISEASE [None]
  - PHARYNGITIS [None]
  - PNEUMONIA [None]
  - PYREXIA [None]
